FAERS Safety Report 8173965-2 (Version None)
Quarter: 2012Q1

REPORT INFORMATION
  Report Type: 
  Country: None (occurrence: None)
  Receive Date: 20120229
  Receipt Date: 20120220
  Transmission Date: 20120608
  Serious: Yes (Other)
  Sender: FDA-Public Use
  Company Number: US-BAYER-2012-017294

PATIENT
  Age: 59 Year
  Sex: Female
  Weight: 112.2 kg

DRUGS (1)
  1. MILK OF MAGNESIA TAB [Suspect]
     Indication: CONSTIPATION
     Dosage: 1 DF, QD
     Route: 048
     Dates: start: 20120219

REACTIONS (4)
  - LIP DISORDER [None]
  - ABDOMINAL PAIN UPPER [None]
  - HAEMORRHAGE [None]
  - LIP SWELLING [None]
